FAERS Safety Report 21379668 (Version 1)
Quarter: 2022Q3

REPORT INFORMATION
  Report Type: Spontaneous
  Country: US (occurrence: None)
  Receive Date: 20220923
  Receipt Date: 20220923
  Transmission Date: 20221026
  Serious: No
  Sender: FDA-Public Use
  Company Number: None

PATIENT
  Age: 59 Year
  Sex: Female

DRUGS (15)
  1. AMBRISENTAN [Suspect]
     Active Substance: AMBRISENTAN
     Indication: Pulmonary arterial hypertension
     Dosage: FREQUENCY : DAILY;?
     Route: 048
     Dates: start: 20220317
  2. TADALAFIL [Suspect]
     Active Substance: TADALAFIL
  3. CLARITHROMYCIN [Suspect]
     Active Substance: CLARITHROMYCIN
  4. CLARITHROMYCIN [Concomitant]
     Active Substance: CLARITHROMYCIN
  5. METRONIDAZOLE [Concomitant]
     Active Substance: METRONIDAZOLE
  6. FUROSEMIDE [Concomitant]
     Active Substance: FUROSEMIDE
  7. MULTIVITAMIN ADULT [Concomitant]
  8. PREDNISONE [Concomitant]
     Active Substance: PREDNISONE
  9. ELIQUIS [Concomitant]
     Active Substance: APIXABAN
  10. DILTIAZEM [Concomitant]
     Active Substance: DILTIAZEM
  11. HERBALS\TURMERIC [Concomitant]
     Active Substance: HERBALS\TURMERIC
  12. OMEGA 3 [Concomitant]
     Active Substance: CAPSAICIN
  13. VITAMIN D3 [Concomitant]
     Active Substance: CHOLECALCIFEROL
  14. VITAMIN C [Concomitant]
     Active Substance: ASCORBIC ACID
  15. MAGNESIUM [Concomitant]
     Active Substance: MAGNESIUM

REACTIONS (3)
  - Helicobacter infection [None]
  - Drug interaction [None]
  - Therapy interrupted [None]
